FAERS Safety Report 20707622 (Version 2)
Quarter: 2022Q2

REPORT INFORMATION
  Report Type: Spontaneous
  Country: US (occurrence: US)
  Receive Date: 20220413
  Receipt Date: 20220418
  Transmission Date: 20220721
  Serious: Yes (Hospitalization, Other)
  Sender: FDA-Public Use
  Company Number: US-ALLERGAN-2211618US

PATIENT
  Sex: Female

DRUGS (19)
  1. BOTOX [Suspect]
     Active Substance: ONABOTULINUMTOXINA
     Indication: Migraine
     Dosage: UNK UNK, SINGLE
  2. LAMOTRIGINE [Concomitant]
     Active Substance: LAMOTRIGINE
     Indication: Pain management
     Dosage: 200MG IN THE MORNING AND AT NIGHT
     Route: 048
  3. LEVOTHYROXINE [Concomitant]
     Active Substance: LEVOTHYROXINE
     Indication: Hypothyroidism
     Dosage: 100 ?G, QD, ON AN EMPTY STOMACH
     Route: 048
  4. ASPIRIN [Concomitant]
     Active Substance: ASPIRIN
     Dosage: 81 MG, IN THE MORNING
  5. ALUMINUM HYDROXIDE\MAGNESIUM CARBONATE [Concomitant]
     Active Substance: ALUMINUM HYDROXIDE\MAGNESIUM CARBONATE
     Indication: Dyspepsia
  6. CANDESARTAN CILEXETIL [Concomitant]
     Active Substance: CANDESARTAN CILEXETIL
     Indication: Hypertension
     Dosage: 8 MG, QD
     Route: 048
     Dates: start: 202111
  7. METOPROLOL TARTRATE [Concomitant]
     Active Substance: METOPROLOL TARTRATE
     Indication: Hypertension
     Dosage: 25 MG, BID
     Dates: start: 202111
  8. MOMETASONE FUROATE [Concomitant]
     Active Substance: MOMETASONE FUROATE
     Indication: Hypersensitivity
     Dosage: TWO INHALATIONS IN THE MORNING AND AT NIGHT
     Route: 045
     Dates: start: 2020
  9. PROVENTIL [Concomitant]
     Active Substance: ALBUTEROL
     Indication: Asthma
     Dosage: 90 ?G, Q6HR, 2PUFFS BY MOUTH
     Route: 055
  10. TIZANIDINE HYDROCHLORIDE [Concomitant]
     Active Substance: TIZANIDINE HYDROCHLORIDE
     Indication: Hypotonia
     Dosage: 4 MG, BID
     Route: 048
     Dates: start: 2014
  11. MIRTAZAPINE [Concomitant]
     Active Substance: MIRTAZAPINE
     Indication: Insomnia
     Dosage: 45 MG, AT NIGHT
     Route: 048
     Dates: start: 2020
  12. MIRTAZAPINE [Concomitant]
     Active Substance: MIRTAZAPINE
     Indication: Depression
  13. SIMVASTATIN [Concomitant]
     Active Substance: SIMVASTATIN
     Indication: Hypercholesterolaemia
     Dosage: 20 MG, AT BEDTIME
     Route: 048
     Dates: start: 2014
  14. OXCARBAZEPINE [Concomitant]
     Active Substance: OXCARBAZEPINE
     Indication: Sleep disorder
     Dosage: 600 MG BEDTIME, NIGHTLY
     Route: 048
     Dates: start: 2021
  15. MONTELUKAST SODIUM [Concomitant]
     Active Substance: MONTELUKAST SODIUM
     Indication: Hypersensitivity
     Dosage: UNK
     Route: 048
  16. DIAZEPAM [Concomitant]
     Active Substance: DIAZEPAM
     Indication: Sleep disorder
     Dosage: 2 TABLTES AT BEDTIME
     Dates: start: 2021
  17. OMEPRAZOLE [Concomitant]
     Active Substance: OMEPRAZOLE
     Indication: Dyspepsia
  18. SUMATRIPTAN [Concomitant]
     Active Substance: SUMATRIPTAN
     Indication: Migraine
  19. AJOVY [Concomitant]
     Active Substance: FREMANEZUMAB-VFRM

REACTIONS (9)
  - Cerebrovascular accident [Unknown]
  - Myocardial infarction [Recovered/Resolved]
  - Aortic stenosis [Unknown]
  - COVID-19 [Recovered/Resolved]
  - COVID-19 [Recovered/Resolved]
  - Coronary artery disease [Unknown]
  - Anaemia [Not Recovered/Not Resolved]
  - Therapeutic response shortened [Unknown]
  - Migraine [Unknown]

NARRATIVE: CASE EVENT DATE: 20210101
